FAERS Safety Report 8400312-0 (Version None)
Quarter: 2012Q2

REPORT INFORMATION
  Report Type: 
  Country: None (occurrence: None)
  Receive Date: 20120525
  Receipt Date: 20120516
  Transmission Date: 20120825
  Serious: Yes (Other)
  Sender: FDA-Public Use
  Company Number: IPC201205-000219

PATIENT
  Age: 55 Year
  Sex: Male
  Weight: 86.1834 kg

DRUGS (6)
  1. METOPROLOL TARTRATE [Suspect]
     Dosage: 2 TIMES DAILY, ORAL
     Route: 048
     Dates: start: 20100101
  2. RANEXA [Concomitant]
  3. CRESTOR [Concomitant]
  4. ISOSORBIDE DINITRATE [Concomitant]
  5. ENALAPRIL MALEATE [Concomitant]
  6. PLAVIX [Concomitant]

REACTIONS (1)
  - MYOCARDIAL INFARCTION [None]
